FAERS Safety Report 21679282 (Version 1)
Quarter: 2022Q4

REPORT INFORMATION
  Report Type: Spontaneous
  Country: IT (occurrence: IT)
  Receive Date: 20221205
  Receipt Date: 20221205
  Transmission Date: 20230113
  Serious: Yes (Hospitalization)
  Sender: FDA-Public Use
  Company Number: IT-MINISAL02-893770

PATIENT
  Age: 17 Year
  Sex: Female

DRUGS (4)
  1. CITALOPRAM [Suspect]
     Active Substance: CITALOPRAM HYDROBROMIDE
     Indication: Depression
     Dosage: 20 MG, 6 UP/TOT
     Route: 048
     Dates: start: 20220604
  2. TALOFEN [Concomitant]
     Active Substance: PROMAZINE HYDROCHLORIDE
     Indication: Product used for unknown indication
     Dosage: UNK
     Route: 065
  3. ARIPIPRAZOLE [Concomitant]
     Active Substance: ARIPIPRAZOLE
     Indication: Product used for unknown indication
     Dosage: 10 MILLIGRAM , 1CP/DAY
     Route: 065
  4. DELORAZEPAM [Concomitant]
     Active Substance: DELORAZEPAM
     Indication: Product used for unknown indication
     Dosage: UNK
     Route: 065

REACTIONS (4)
  - Loss of consciousness [Unknown]
  - Tremor [Unknown]
  - Drug abuse [Unknown]
  - Blood creatine phosphokinase increased [Recovering/Resolving]

NARRATIVE: CASE EVENT DATE: 20220604
